FAERS Safety Report 11110290 (Version 2)
Quarter: 2015Q2

REPORT INFORMATION
  Report Type: Spontaneous
  Country: US (occurrence: US)
  Receive Date: 20150513
  Receipt Date: 20150604
  Transmission Date: 20150821
  Serious: No
  Sender: FDA-Public Use
  Company Number: US-PFIZER INC-2015158402

PATIENT
  Age: 77 Year
  Sex: Female
  Weight: 65 kg

DRUGS (2)
  1. ADVIL [Suspect]
     Active Substance: IBUPROFEN
     Indication: DRUG HYPERSENSITIVITY
     Dosage: UNK (600MG TO 800MG)
  2. ADVIL [Suspect]
     Active Substance: IBUPROFEN
     Indication: BACK PAIN
     Dosage: 4 DF, 3X/DAY (MORNING, AFTERNOON AND NIGHT)

REACTIONS (4)
  - Intentional product misuse [Unknown]
  - Product shape issue [Unknown]
  - Dysphagia [Unknown]
  - Foreign body [Not Recovered/Not Resolved]
